FAERS Safety Report 5673620-4 (Version None)
Quarter: 2008Q2

REPORT INFORMATION
  Report Type: 
  Country: None (occurrence: None)
  Receive Date: 20080225
  Receipt Date: 20070710
  Transmission Date: 20081010
  Serious: Yes (Life-Threatening, Hospitalization, Disabling, Other)
  Sender: FDA-Public Use
  Company Number: WAES 0610USA07309

PATIENT
  Age: 72 Year
  Sex: Male
  Weight: 71.6683 kg

DRUGS (14)
  1. ZOCOR [Suspect]
     Indication: HYPERLIPIDAEMIA
     Dosage: 80 MG/HS/PO
     Route: 048
     Dates: start: 20060801, end: 20060828
  2. AMIODARONE HCL [Suspect]
     Dosage: 200 MG/DAILY ; 400 MG/DAILY
  3. AMIODARONE HCL [Suspect]
     Dosage: 200 MG/DAILY ; 400 MG/DAILY
     Dates: start: 20060809
  4. ATAZANAVIR UNK [Suspect]
     Indication: HIV INFECTION
     Dosage: 400 MG/HS
     Dates: start: 20061001
  5. GLYCOLAX [Concomitant]
  6. PLAVIX [Concomitant]
  7. ASPIRIN [Concomitant]
  8. DELAVIRDINE MESYLATE [Concomitant]
  9. DOCUSATE SODIUM [Concomitant]
  10. FAMOTIDINE [Concomitant]
  11. ISOSORBIDE MONONITRATE [Concomitant]
  12. METOPROLOL SUCCINATE [Concomitant]
  13. STAVUDINE [Concomitant]
  14. TERAZOSIN HYDROCHLORIDE [Concomitant]

REACTIONS (3)
  - DRUG INTERACTION [None]
  - RENAL FAILURE ACUTE [None]
  - RHABDOMYOLYSIS [None]
